FAERS Safety Report 23422148 (Version 1)
Quarter: 2024Q1

REPORT INFORMATION
  Report Type: Spontaneous
  Country: US (occurrence: None)
  Receive Date: 20240118
  Receipt Date: 20240118
  Transmission Date: 20240410
  Serious: Yes (Other)
  Sender: FDA-Public Use
  Company Number: None

PATIENT
  Sex: Male
  Weight: 45 kg

DRUGS (1)
  1. MONTELUKAST SODIUM [Suspect]
     Active Substance: MONTELUKAST SODIUM
     Indication: Asthma

REACTIONS (8)
  - Epistaxis [None]
  - Insomnia [None]
  - Hallucination, auditory [None]
  - Emotional disorder [None]
  - Crying [None]
  - Suicidal ideation [None]
  - Reaction to colouring [None]
  - Adverse drug reaction [None]
